FAERS Safety Report 6608585-1 (Version None)
Quarter: 2010Q1

REPORT INFORMATION
  Report Type: 
  Country: None (occurrence: None)
  Receive Date: 20100226
  Receipt Date: 20100226
  Transmission Date: 20100710
  Serious: No
  Sender: FDA-Public Use
  Company Number: None

PATIENT
  Age: 72 Year
  Sex: Male
  Weight: 72.5755 kg

DRUGS (19)
  1. LISINOPRIL [Suspect]
     Dosage: 5MG PO
     Route: 048
  2. AMLODIPINE [Concomitant]
  3. ASPIRIN [Concomitant]
  4. METOPROLOL TARTRATE [Concomitant]
  5. LEVETIRACETUM [Concomitant]
  6. LAMOTRIGINE [Concomitant]
  7. SIMVASTATIN [Concomitant]
  8. TRAVATAN [Concomitant]
  9. OMEPRAZOLE [Concomitant]
  10. NITROGLYCERIN [Concomitant]
  11. ALBUTEROL [Concomitant]
  12. HUMALOG [Concomitant]
  13. PHENYTOIN [Concomitant]
  14. RISPERIDONE [Concomitant]
  15. LANTUS [Concomitant]
  16. VENLAFAXINE [Concomitant]
  17. QUETIAPINE [Concomitant]
  18. LORAZEPAM [Concomitant]
  19. ARIPIPRAZOLE [Concomitant]

REACTIONS (4)
  - ANGINA PECTORIS [None]
  - CHEST PAIN [None]
  - ISCHAEMIA [None]
  - TROPONIN INCREASED [None]
